FAERS Safety Report 6903609-6 (Version None)
Quarter: 2010Q3

REPORT INFORMATION
  Report Type: 
  Country: None (occurrence: None)
  Receive Date: 20100803
  Receipt Date: 20081023
  Transmission Date: 20110219
  Serious: No
  Sender: FDA-Public Use
  Company Number: US-PFIZER INC-2008089923

PATIENT
  Sex: Female
  Weight: 61.363 kg

DRUGS (4)
  1. LYRICA [Suspect]
     Indication: NEURALGIA
     Dates: start: 20060801
  2. ASPIRIN [Concomitant]
  3. PROPRANOLOL [Concomitant]
  4. ZYRTEC [Concomitant]

REACTIONS (3)
  - ANXIETY [None]
  - IRRITABILITY [None]
  - WEIGHT INCREASED [None]
